FAERS Safety Report 10024204 (Version 2)
Quarter: 2014Q3

REPORT INFORMATION
  Report Type: Spontaneous
  Country: US (occurrence: US)
  Receive Date: 20140320
  Receipt Date: 20140811
  Transmission Date: 20150326
  Serious: Yes (Other)
  Sender: FDA-Public Use
  Company Number: US-PFIZER INC-2014078414

PATIENT
  Age: 55 Year
  Sex: Male
  Weight: 83.9 kg

DRUGS (5)
  1. IRON [Concomitant]
     Active Substance: IRON
     Dosage: UNK
  2. OXYCONTIN [Concomitant]
     Active Substance: OXYCODONE HYDROCHLORIDE
     Dosage: 10 MG, UNK
  3. CELEBREX [Suspect]
     Active Substance: CELECOXIB
     Dosage: 200 MG, 2X/DAY
     Route: 048
     Dates: start: 201403, end: 20140310
  4. COUMADINE [Concomitant]
     Active Substance: WARFARIN SODIUM
     Indication: ANTICOAGULANT THERAPY
     Dosage: UNK
  5. CELEBREX [Suspect]
     Active Substance: CELECOXIB
     Indication: HIP ARTHROPLASTY
     Dosage: 200 MG, 1X/DAY
     Route: 048
     Dates: start: 20140304, end: 201403

REACTIONS (6)
  - Choking [Unknown]
  - Pyrexia [Unknown]
  - Rash [Unknown]
  - Swelling [Unknown]
  - Drug ineffective for unapproved indication [Unknown]
  - Pharyngeal oedema [Unknown]

NARRATIVE: CASE EVENT DATE: 201403
